FAERS Safety Report 19065507 (Version 5)
Quarter: 2021Q4

REPORT INFORMATION
  Report Type: Report from Study
  Country: US (occurrence: US)
  Receive Date: 20210327
  Receipt Date: 20211221
  Transmission Date: 20220303
  Serious: Yes (Other)
  Sender: FDA-Public Use
  Company Number: NVSC2021US063276

PATIENT
  Age: 56 Year
  Sex: Female

DRUGS (5)
  1. COSENTYX [Suspect]
     Active Substance: SECUKINUMAB
     Indication: Psoriasis
     Dosage: 300 MG, QW (QW FOR 5 WEEKS AND THEN QMO)
     Route: 058
     Dates: start: 20210225
  2. COSENTYX [Suspect]
     Active Substance: SECUKINUMAB
     Dosage: 300 MG, QW
     Route: 058
     Dates: start: 20210304
  3. COSENTYX [Suspect]
     Active Substance: SECUKINUMAB
     Dosage: 150 MG, UNKNOWN
     Route: 065
  4. COSENTYX [Suspect]
     Active Substance: SECUKINUMAB
     Dosage: 300 MG, QMO
     Route: 058
     Dates: start: 20210629
  5. COSENTYX [Suspect]
     Active Substance: SECUKINUMAB
     Dosage: 300 MG, QMO (SUBCUTANEOUS: BENEATH THE SKIN, USUALLY VIA INJECTION)
     Route: 058

REACTIONS (14)
  - Glaucoma [Unknown]
  - Blood pressure increased [Unknown]
  - Ear infection [Unknown]
  - Feeling cold [Unknown]
  - Feeling hot [Unknown]
  - Depression [Unknown]
  - Fatigue [Unknown]
  - Dizziness [Unknown]
  - Dry skin [Unknown]
  - Pigmentation disorder [Unknown]
  - Erythema [Unknown]
  - Skin plaque [Unknown]
  - Symptom recurrence [Unknown]
  - Anxiety [Unknown]

NARRATIVE: CASE EVENT DATE: 20210309
